FAERS Safety Report 9741642 (Version 2)
Quarter: 2014Q1

REPORT INFORMATION
  Report Type: Spontaneous
  Country: US (occurrence: US)
  Receive Date: 20131210
  Receipt Date: 20140203
  Transmission Date: 20141002
  Serious: No
  Sender: FDA-Public Use
  Company Number: US-BIOGENIDEC-2013BI115560

PATIENT
  Age: 57 Year
  Sex: Male

DRUGS (2)
  1. TYSABRI [Suspect]
     Indication: MULTIPLE SCLEROSIS
     Route: 042
     Dates: start: 20130731
  2. BENEDRYL [Concomitant]
     Indication: PREMEDICATION

REACTIONS (5)
  - Infusion site mass [Recovered/Resolved]
  - Injection site reaction [Unknown]
  - Injection site erythema [Unknown]
  - Infusion site rash [Recovered/Resolved]
  - Rash [Recovered/Resolved]
